FAERS Safety Report 4588530-3 (Version None)
Quarter: 2005Q1

REPORT INFORMATION
  Report Type: 
  Country: None (occurrence: None)
  Receive Date: 20050222
  Receipt Date: 20050214
  Transmission Date: 20050727
  Serious: Yes (Death)
  Sender: FDA-Public Use
  Company Number: 200511163US

PATIENT
  Sex: Male

DRUGS (7)
  1. KETEK [Suspect]
     Indication: BRONCHITIS ACUTE
     Route: 048
     Dates: start: 20040928, end: 20040901
  2. HYZAAR [Concomitant]
     Dosage: DOSE: NOT PROVIDED
  3. RHINOCORT [Concomitant]
     Dosage: DOSE: NOT PROVIDED
  4. ZOCOR [Concomitant]
     Indication: HYPERLIPIDAEMIA
     Dosage: DOSE: NOT PROVIDED
  5. HUMIBID LA [Concomitant]
     Dosage: DOSE: NOT PROVIDED
  6. ALBUTEROL [Concomitant]
     Dosage: DOSE: NOT PROVIDED
  7. COMBIVENT [Concomitant]
     Dosage: DOSE: NOT PROVIDED

REACTIONS (4)
  - CIRCULATORY COLLAPSE [None]
  - LUNG NEOPLASM [None]
  - OXYGEN SATURATION DECREASED [None]
  - PULMONARY CONGESTION [None]
